FAERS Safety Report 22646593 (Version 1)
Quarter: 2023Q2

REPORT INFORMATION
  Report Type: Spontaneous
  Country: CN (occurrence: CN)
  Receive Date: 20230627
  Receipt Date: 20230627
  Transmission Date: 20230721
  Serious: Yes (Other)
  Sender: FDA-Public Use
  Company Number: CN-SA-SAC20230626001400

PATIENT
  Age: 61 Year
  Sex: Male
  Weight: 48 kg

DRUGS (5)
  1. OXALIPLATIN [Suspect]
     Active Substance: OXALIPLATIN
     Indication: Colon cancer
     Dosage: 180 MG QD
     Route: 041
     Dates: start: 20230516, end: 20230516
  2. OXALIPLATIN [Suspect]
     Active Substance: OXALIPLATIN
     Dosage: 150 MG QD
     Route: 041
     Dates: start: 20230608, end: 20230608
  3. CAPECITABINE [Suspect]
     Active Substance: CAPECITABINE
     Indication: Colon cancer
     Dosage: 1.5 G BID
     Route: 048
     Dates: start: 20230517, end: 20230530
  4. CAPECITABINE [Suspect]
     Active Substance: CAPECITABINE
     Dosage: 1 G QM AND 1.5 G QN
     Route: 048
     Dates: start: 20230608
  5. DEXTROSE [Concomitant]
     Active Substance: DEXTROSE\DEXTROSE MONOHYDRATE
     Dosage: 250 ML

REACTIONS (4)
  - Flushing [Recovering/Resolving]
  - Asthenia [Recovering/Resolving]
  - Rash [Recovering/Resolving]
  - Pain [Recovering/Resolving]

NARRATIVE: CASE EVENT DATE: 20230605
